FAERS Safety Report 11256397 (Version 1)
Quarter: 2015Q3

REPORT INFORMATION
  Report Type: Spontaneous
  Country: US (occurrence: US)
  Receive Date: 20150709
  Receipt Date: 20150709
  Transmission Date: 20151125
  Serious: Yes (Hospitalization)
  Sender: FDA-Public Use
  Company Number: US-JNJFOC-20150705039

PATIENT
  Age: 83 Year
  Sex: Female

DRUGS (7)
  1. ELIQUIS [Concomitant]
     Active Substance: APIXABAN
  2. CARDIZEM [Concomitant]
     Active Substance: DILTIAZEM HYDROCHLORIDE
  3. ATORVASTATIN [Concomitant]
     Active Substance: ATORVASTATIN
  4. SPIRONOLACTONE. [Concomitant]
     Active Substance: SPIRONOLACTONE
  5. LASIX [Concomitant]
     Active Substance: FUROSEMIDE
  6. LEVOTHYROXINE. [Concomitant]
     Active Substance: LEVOTHYROXINE
  7. IMBRUVICA [Suspect]
     Active Substance: IBRUTINIB
     Indication: CHRONIC LYMPHOCYTIC LEUKAEMIA
     Route: 048
     Dates: start: 201505

REACTIONS (4)
  - Blood count abnormal [Unknown]
  - Incorrect dose administered [Unknown]
  - Cardiac failure congestive [Unknown]
  - Oedema [Unknown]

NARRATIVE: CASE EVENT DATE: 201505
